FAERS Safety Report 8246531-8 (Version None)
Quarter: 2012Q1

REPORT INFORMATION
  Report Type: 
  Country: None (occurrence: None)
  Receive Date: 20120330
  Receipt Date: 20120320
  Transmission Date: 20120608
  Serious: Yes (Hospitalization)
  Sender: FDA-Public Use
  Company Number: US-BRISTOL-MYERS SQUIBB COMPANY-16465932

PATIENT
  Age: 70 Year
  Sex: Female

DRUGS (18)
  1. METOPROLOL TARTRATE [Suspect]
     Route: 048
     Dates: start: 20090203
  2. FUROSEMIDE [Concomitant]
     Dosage: ONE ON MONDAY,WENESDAY,FRIDAY.
     Route: 048
     Dates: start: 20080310
  3. KLOR-CON M [Concomitant]
     Dosage: FORMULATION:KLOR-CON M10
     Route: 048
     Dates: start: 20090323
  4. LYRICA [Concomitant]
     Dosage: CAPS
     Route: 048
     Dates: start: 20090730
  5. TRAZODONE HCL [Suspect]
     Indication: INSOMNIA
     Dosage: 2TABS AT BEDTIME AS NECESSARY
     Route: 048
     Dates: start: 20040830
  6. TRICOR [Concomitant]
     Route: 048
     Dates: start: 20100219
  7. METFORMIN HCL [Suspect]
     Route: 048
     Dates: start: 20091208
  8. ALPRAZOLAM [Suspect]
     Dosage: TAB
     Route: 048
     Dates: start: 20040830
  9. CIPROFLOXACIN [Suspect]
  10. AMITRIPTYLINE HCL [Concomitant]
     Route: 048
     Dates: start: 20100216
  11. LYRICA [Suspect]
     Indication: NEUROPATHY PERIPHERAL
     Route: 048
     Dates: start: 20090730
  12. CARAFATE [Concomitant]
     Dosage: 1DF=1 GM/10ML ORAL SUSPENSION
     Route: 048
     Dates: start: 20090116
  13. OMEPRAZOLE [Concomitant]
     Route: 048
     Dates: start: 20100127
  14. PROMETHAZINE HCL [Concomitant]
     Indication: NAUSEA
     Dosage: FREQUENCY-1/6HR PRN
     Route: 048
     Dates: start: 20120125
  15. TIZANIDINE HCL [Concomitant]
     Indication: BACK PAIN
     Dosage: 1TAB AT BEDTIME PRN
     Route: 048
     Dates: start: 20110809
  16. ALBUTEROL SULFATE [Concomitant]
     Dosage: 1DF= 2.5MG/3ML 0.083% INHALATION NEBULIZATION SOLUTION
     Route: 045
     Dates: start: 20110716
  17. FLUTICASONE PROPIONATE [Concomitant]
     Dosage: 1DF=MCG/ACT NASAL SUSPENSION
     Dates: start: 20040831
  18. GLYBURIDE [Concomitant]
     Route: 048
     Dates: start: 20091208

REACTIONS (3)
  - RENAL FAILURE [None]
  - DEPRESSION [None]
  - TRANSIENT ISCHAEMIC ATTACK [None]
